FAERS Safety Report 7830246-1 (Version None)
Quarter: 2011Q4

REPORT INFORMATION
  Report Type: 
  Country: None (occurrence: None)
  Receive Date: 20111021
  Receipt Date: 20111014
  Transmission Date: 20120403
  Serious: Yes (Hospitalization, Other)
  Sender: FDA-Public Use
  Company Number: PHHY2011BR64123

PATIENT
  Sex: Male

DRUGS (6)
  1. EXELON [Suspect]
     Indication: DEMENTIA ALZHEIMER'S TYPE
     Dosage: 4.6 MG, (9 MG/5 CM2 )
     Route: 062
  2. SYMBICORT [Concomitant]
     Indication: DYSPNOEA
     Dosage: 1 DF, UNK
  3. PROLOPA [Concomitant]
     Dosage: 0.5 DF, BID
     Route: 048
  4. DIGOXIN [Concomitant]
     Dosage: 20 MG, QD
     Route: 048
  5. LOSARTAN POTASSIUM [Concomitant]
     Dosage: 1 DF, UNK
     Route: 048
  6. SIMVASTATIN [Concomitant]
     Dosage: 1 DF, QD
     Route: 048

REACTIONS (3)
  - PNEUMONIA [None]
  - URINARY TRACT INFECTION [None]
  - ABASIA [None]
